FAERS Safety Report 7459845-6 (Version None)
Quarter: 2011Q2

REPORT INFORMATION
  Report Type: 
  Country: None (occurrence: None)
  Receive Date: 20110427
  Receipt Date: 20110412
  Transmission Date: 20111010
  Serious: Yes (Other)
  Sender: FDA-Public Use
  Company Number: DSJ-2011-07123

PATIENT
  Age: 9 Decade
  Sex: Female

DRUGS (4)
  1. PERSANTIN (DIPYRIDAMOLE) (DIPYRIDAMOLE) [Concomitant]
  2. LIPITOR [Suspect]
     Indication: PRODUCT USED FOR UNKNOWN INDICATION
     Dosage: ,PER ORAL
     Route: 048
     Dates: end: 20110401
  3. OLMESARTAN MEDOXOMIL [Suspect]
     Indication: HYPERTENSION
     Dosage: ,PER ORAL
     Route: 048
     Dates: end: 20110401
  4. MUCOSTA (REBAMIPIDE)(REBAMIPIDE) [Concomitant]

REACTIONS (1)
  - PLATELET COUNT DECREASED [None]
